FAERS Safety Report 12563786 (Version 6)
Quarter: 2016Q4

REPORT INFORMATION
  Report Type: Report from Study
  Country: None (occurrence: JP)
  Receive Date: 20160716
  Receipt Date: 20161206
  Transmission Date: 20170207
  Serious: Yes (Death, Hospitalization, Other)
  Sender: FDA-Public Use
  Company Number: JP-ABBVIE-16K-087-1645541-00

PATIENT
  Age: 28 Year
  Sex: Female

DRUGS (4)
  1. PREDNISOLONE. [Concomitant]
     Active Substance: PREDNISOLONE
     Indication: BEHCET^S SYNDROME
     Route: 048
     Dates: start: 20130606, end: 20151204
  2. HUMIRA [Suspect]
     Active Substance: ADALIMUMAB
     Indication: BEHCET^S SYNDROME
     Route: 058
     Dates: start: 20130606
  3. METHOTREXATE. [Concomitant]
     Active Substance: METHOTREXATE
     Indication: PRODUCT USED FOR UNKNOWN INDICATION
     Dosage: 6 MG/WEEK
     Route: 048
     Dates: start: 20141016, end: 20151204
  4. HUMIRA [Suspect]
     Active Substance: ADALIMUMAB
     Route: 058
     Dates: start: 20150205, end: 20151204

REACTIONS (8)
  - Acute myeloid leukaemia [Fatal]
  - Post procedural haematoma [Unknown]
  - Subarachnoid haemorrhage [Unknown]
  - Brain herniation [Unknown]
  - Disseminated intravascular coagulation [Unknown]
  - Fistula [Recovered/Resolved]
  - Septic shock [Unknown]
  - Blood disorder [Unknown]

NARRATIVE: CASE EVENT DATE: 20151204
